FAERS Safety Report 8922053 (Version 1)
Quarter: 2013Q1

REPORT INFORMATION
  Report Type: Spontaneous
  Country: US (occurrence: None)
  Receive Date: 20121120
  Receipt Date: 20121120
  Transmission Date: 20140127
  Serious: Yes (Hospitalization)
  Sender: FDA-Public Use
  Company Number: None

PATIENT
  Age: 55 Year
  Sex: Female
  Weight: 36.29 kg

DRUGS (1)
  1. CETUXIMAB [Suspect]
     Dosage: 250 MG/M^2
     Dates: start: 20120822, end: 20121113

REACTIONS (4)
  - Dyspnoea [None]
  - Rash [None]
  - Hypokalaemia [None]
  - Hypomagnesaemia [None]
